FAERS Safety Report 12205266 (Version 2)
Quarter: 2016Q2

REPORT INFORMATION
  Report Type: Spontaneous
  Country: US (occurrence: US)
  Receive Date: 20160323
  Receipt Date: 20160411
  Transmission Date: 20160815
  Serious: Yes (Death, Hospitalization, Other)
  Sender: FDA-Public Use
  Company Number: US-PFIZER INC-2016167331

PATIENT
  Age: 72 Year
  Sex: Male

DRUGS (12)
  1. CLONIDINE. [Concomitant]
     Active Substance: CLONIDINE
     Indication: BLOOD PRESSURE MANAGEMENT
     Dosage: 1 DF, DAILY
  2. AMLODIPINE BESILATE [Concomitant]
     Active Substance: AMLODIPINE BESYLATE
     Indication: BLOOD PRESSURE MANAGEMENT
     Dosage: 1 DF, DAILY
  3. RAPAMUNE [Suspect]
     Active Substance: SIROLIMUS
     Indication: LUNG TRANSPLANT
     Dosage: 20 UNK, 1X/DAY
  4. BACTRIM [Concomitant]
     Active Substance: SULFAMETHOXAZOLE\TRIMETHOPRIM
     Dosage: ^MON V FRI^
  5. XANAX [Concomitant]
     Active Substance: ALPRAZOLAM
     Dosage: UNK, 2X/DAY
  6. ZINC [Concomitant]
     Active Substance: ZINC\ZINC CHLORIDE
     Dosage: 1 DF, DAILY
  7. MAG [Concomitant]
     Dosage: 1 DF, DAILY
  8. PREDNISONE. [Concomitant]
     Active Substance: PREDNISONE
     Dosage: 20 MG, UNK
  9. IRON [Concomitant]
     Active Substance: IRON
     Dosage: 1 UNK, UNK
  10. PROCRIT SHAT [Concomitant]
     Dosage: UNK (EVERY 2 WEEK)
  11. VITAMIN D [Concomitant]
     Active Substance: CHOLECALCIFEROL
     Dosage: 1 DF, DAILY
  12. PROGRAF [Suspect]
     Active Substance: TACROLIMUS\TACROLIMUS ANHYDROUS
     Dosage: 2 MG, DAILY

REACTIONS (6)
  - Haemorrhage [Unknown]
  - Renal failure [Fatal]
  - Product use issue [Unknown]
  - Pulmonary fibrosis [Unknown]
  - Contusion [Unknown]
  - Fall [Unknown]

NARRATIVE: CASE EVENT DATE: 201501
